FAERS Safety Report 10598320 (Version 1)
Quarter: 2014Q4

REPORT INFORMATION
  Report Type: Spontaneous
  Country: US (occurrence: None)
  Receive Date: 20141113
  Receipt Date: 20141113
  Transmission Date: 20150529
  Serious: No
  Sender: FDA-Public Use
  Company Number: US2014GSK005354

PATIENT
  Sex: Male

DRUGS (3)
  1. EPZICOM (ABACAVIR + LAMIVUDINE) [Concomitant]
  2. TIVICAY [Suspect]
     Active Substance: DOLUTEGRAVIR SODIUM
     Indication: HIV INFECTION
  3. TRUVADA (EMTRICITABINE + TENOFOVIR DISOPROXIL FUMARATE) [Concomitant]

REACTIONS (1)
  - Blood creatinine increased [None]
